FAERS Safety Report 7998899-5 (Version None)
Quarter: 2011Q4

REPORT INFORMATION
  Report Type: 
  Country: None (occurrence: None)
  Receive Date: 20111221
  Receipt Date: 20111214
  Transmission Date: 20120403
  Serious: Yes (Other)
  Sender: FDA-Public Use
  Company Number: IE-GLAXOSMITHKLINE-B0734752A

PATIENT
  Sex: Male

DRUGS (6)
  1. DEXAMETHASONE [Concomitant]
     Dosage: 2MG PER DAY
     Route: 048
  2. LIPITOR [Concomitant]
     Dosage: 10MG PER DAY
     Route: 048
  3. VOTRIENT [Suspect]
     Indication: METASTATIC RENAL CELL CARCINOMA
     Dosage: 800MG PER DAY
     Route: 048
     Dates: start: 20110610, end: 20110712
  4. FERROUS SULFATE TAB [Concomitant]
     Route: 048
  5. ISTIN [Concomitant]
     Dosage: 10MG PER DAY
     Route: 048
  6. PANTOPRAZOLE [Concomitant]
     Dosage: 40MG PER DAY
     Route: 048

REACTIONS (4)
  - HYPERTENSION [None]
  - SWELLING FACE [None]
  - TACHYCARDIA [None]
  - EYE PAIN [None]
